FAERS Safety Report 4374738-9 (Version None)
Quarter: 2004Q2

REPORT INFORMATION
  Report Type: 
  Country: None (occurrence: None)
  Receive Date: 20040604
  Receipt Date: 20040527
  Transmission Date: 20050107
  Serious: Yes (Congenital Anomaly)
  Sender: FDA-Public Use
  Company Number: JP-JNJFOC-20040505676

PATIENT

DRUGS (3)
  1. RISPERDAL [Suspect]
     Indication: DRUG USE FOR UNKNOWN INDICATION
     Dosage: 6 MG, IN 1 DAY, INTRAUTERINE
     Route: 015
  2. BIPERIDEN HYDROCHLORIDE TAB [Concomitant]
  3. FLUNITRAZEPAM (FLUNITRAZEPAM) [Concomitant]

REACTIONS (2)
  - CONGENITAL ATRIAL SEPTAL DEFECT [None]
  - DRUG EXPOSURE DURING PREGNANCY [None]
